FAERS Safety Report 12998105 (Version 1)
Quarter: 2016Q4

REPORT INFORMATION
  Report Type: Spontaneous
  Country: US (occurrence: US)
  Receive Date: 20161202
  Receipt Date: 20161202
  Transmission Date: 20170207
  Serious: No
  Sender: FDA-Public Use
  Company Number: None

PATIENT
  Age: 43 Year
  Sex: Female
  Weight: 63 kg

DRUGS (6)
  1. VIIBRYD [Concomitant]
     Active Substance: VILAZODONE HYDROCHLORIDE
  2. LAMOTROGINE 25 MG [Suspect]
     Active Substance: LAMOTRIGINE
     Indication: MOOD ALTERED
     Dosage: ?          QUANTITY:3 TABLET(S);?
     Route: 048
  3. ATIVAN [Concomitant]
     Active Substance: LORAZEPAM
  4. SYNTHROID [Concomitant]
     Active Substance: LEVOTHYROXINE SODIUM
  5. VYVANSE [Concomitant]
     Active Substance: LISDEXAMFETAMINE DIMESYLATE
  6. PAXIL [Concomitant]
     Active Substance: PAROXETINE HYDROCHLORIDE

REACTIONS (18)
  - Stomatitis [None]
  - Chest discomfort [None]
  - Skin exfoliation [None]
  - Stevens-Johnson syndrome [None]
  - Extrasystoles [None]
  - Withdrawal syndrome [None]
  - Productive cough [None]
  - Neutrophil count decreased [None]
  - Skin burning sensation [None]
  - Influenza like illness [None]
  - Vomiting [None]
  - Tachycardia [None]
  - Pneumonia [None]
  - Body temperature increased [None]
  - Dyspnoea [None]
  - Dysphonia [None]
  - Scab [None]
  - Hypersensitivity [None]

NARRATIVE: CASE EVENT DATE: 20161104
